FAERS Safety Report 8084448-2 (Version None)
Quarter: 2012Q1

REPORT INFORMATION
  Report Type: 
  Country: None (occurrence: None)
  Receive Date: 20120128
  Receipt Date: 20110324
  Transmission Date: 20120608
  Serious: No
  Sender: FDA-Public Use
  Company Number: US-ABBOTT-11P-163-0714071-00

PATIENT
  Age: 47 Year
  Sex: Male

DRUGS (9)
  1. HUMIRA [Suspect]
     Indication: CROHN'S DISEASE
     Dates: start: 20110201
  2. LANTUS [Concomitant]
     Indication: BLOOD GLUCOSE
     Dosage: 22 UNITS IN THE EVENING
  3. GLIPIZIDE [Concomitant]
     Indication: BLOOD GLUCOSE
  4. ACTOS [Concomitant]
     Indication: BLOOD GLUCOSE
  5. ASACOL [Concomitant]
     Indication: CROHN'S DISEASE
  6. PROTONIX [Concomitant]
     Indication: GASTROOESOPHAGEAL REFLUX DISEASE
  7. GLUCOPHAGE [Concomitant]
     Indication: BLOOD GLUCOSE
  8. LISINOPRIL [Concomitant]
     Indication: BLOOD PRESSURE
  9. HUMALOG [Concomitant]
     Indication: BLOOD GLUCOSE
     Dosage: SLIDING SCALE

REACTIONS (1)
  - INJECTION SITE PAIN [None]
